FAERS Safety Report 13446674 (Version 2)
Quarter: 2017Q2

REPORT INFORMATION
  Report Type: Spontaneous
  Country: KZ (occurrence: KZ)
  Receive Date: 20170417
  Receipt Date: 20170421
  Transmission Date: 20170830
  Serious: Yes (Other)
  Sender: FDA-Public Use
  Company Number: KZ-UCBSA-2017014481

PATIENT
  Sex: Female
  Weight: 53 kg

DRUGS (2)
  1. ENALAPRIL [Concomitant]
     Active Substance: ENALAPRIL
     Indication: PRODUCT USED FOR UNKNOWN INDICATION
     Dosage: UNK
     Dates: start: 201301
  2. KEPPRA [Suspect]
     Active Substance: LEVETIRACETAM
     Indication: TEMPORAL LOBE EPILEPSY
     Dosage: 1000 MG KEPPRA TABLET ON TWO PARTS AND 500 MG KEPPRA TABLET ON TWO PARTS AND TOOK 750, 2X/DAY (BID)
     Route: 048
     Dates: start: 201301

REACTIONS (3)
  - Drug ineffective [Unknown]
  - Seizure [Recovered/Resolved]
  - Product quality issue [Unknown]

NARRATIVE: CASE EVENT DATE: 201702
